FAERS Safety Report 5750156-3 (Version None)
Quarter: 2008Q2

REPORT INFORMATION
  Report Type: 
  Country: None (occurrence: None)
  Receive Date: 20080522
  Receipt Date: 20080522
  Transmission Date: 20081010
  Serious: Yes (Hospitalization)
  Sender: FDA-Public Use
  Company Number: None

PATIENT
  Sex: Male
  Weight: 73.4827 kg

DRUGS (9)
  1. RANIBIZUMAB [Suspect]
     Indication: MACULAR DEGENERATION
     Dosage: 0.5 MG MONTHLY OPHTHALMIC
     Route: 047
     Dates: start: 20071022, end: 20080219
  2. ASPIRIN [Concomitant]
  3. ZOCOR [Concomitant]
  4. ADVAIR DISKUS 100/50 [Concomitant]
  5. SPRIVA [Concomitant]
  6. SYNTHROID [Concomitant]
  7. DIOVAN [Concomitant]
  8. BISOPROLOL FUMARATE [Concomitant]
  9. NASONEX [Concomitant]

REACTIONS (1)
  - LOBAR PNEUMONIA [None]
